FAERS Safety Report 4975570-5 (Version None)
Quarter: 2006Q2

REPORT INFORMATION
  Report Type: 
  Country: None (occurrence: None)
  Receive Date: 20060410
  Receipt Date: 20060325
  Transmission Date: 20061013
  Serious: Yes (Hospitalization)
  Sender: FDA-Public Use
  Company Number: GXKR2006JP01728

PATIENT
  Age: 52 Year
  Sex: Female

DRUGS (1)
  1. PREDNISOLONE [Suspect]
     Dosage: 10 MG, QOD,

REACTIONS (7)
  - BRAIN ABSCESS [None]
  - CHEST PAIN [None]
  - HEADACHE [None]
  - LUNG INFECTION [None]
  - NOCARDIOSIS [None]
  - PYREXIA [None]
  - VOMITING [None]
